FAERS Safety Report 10169971 (Version 2)
Quarter: 2014Q2

REPORT INFORMATION
  Report Type: Report from Study
  Country: FR (occurrence: FR)
  Receive Date: 20140513
  Receipt Date: 20140513
  Transmission Date: 20141212
  Serious: Yes (Other)
  Sender: FDA-Public Use
  Company Number: FR-ASTELLAS-2013EU010779

PATIENT
  Age: 50 Year
  Sex: Male

DRUGS (2)
  1. TACROLIMUS [Suspect]
     Route: 048
     Dates: start: 20130816
  2. MYFORTIC [Suspect]
     Route: 048
     Dates: start: 20130816

REACTIONS (1)
  - Precancerous skin lesion [Recovered/Resolved]
